FAERS Safety Report 19055896 (Version 1)
Quarter: 2021Q1

REPORT INFORMATION
  Report Type: Spontaneous
  Country: US (occurrence: US)
  Receive Date: 20210324
  Receipt Date: 20210324
  Transmission Date: 20210420
  Serious: Yes (Death)
  Sender: FDA-Public Use
  Company Number: None

PATIENT
  Age: 59 Year
  Sex: Female

DRUGS (1)
  1. POMALYST [Suspect]
     Active Substance: POMALIDOMIDE
     Indication: PLASMA CELL MYELOMA
     Route: 048
     Dates: start: 20201231, end: 20210322

REACTIONS (10)
  - Neck pain [None]
  - Headache [None]
  - Arthralgia [None]
  - Dyspnoea [None]
  - Humerus fracture [None]
  - Plasma cell myeloma [None]
  - Tachycardia [None]
  - Pneumonia [None]
  - Plasmacytoma [None]
  - Fall [None]

NARRATIVE: CASE EVENT DATE: 20210322
